FAERS Safety Report 4328700-2 (Version None)
Quarter: 2004Q1

REPORT INFORMATION
  Report Type: 
  Country: None (occurrence: None)
  Receive Date: 20040329
  Receipt Date: 20031218
  Transmission Date: 20041129
  Serious: Yes (Death, Hospitalization)
  Sender: FDA-Public Use
  Company Number: 03P-163-0245085-00

PATIENT
  Age: 73 Year
  Sex: Female

DRUGS (16)
  1. HUMIRA [Suspect]
     Indication: RHEUMATOID ARTHRITIS
     Dosage: 40 MG, 1 IN 2 WK, SUBCUTANEOUS
     Route: 058
     Dates: start: 20031017, end: 20031201
  2. CALCIUM CARBONATE [Concomitant]
  3. ESTROGENS CONJUGATED [Concomitant]
  4. NIFEDIPINE [Concomitant]
  5. NITROGLYCERIN [Concomitant]
  6. PRAVASTATIN SODIUM [Concomitant]
  7. DOXEPIN HCL [Concomitant]
  8. RANITIDINE [Concomitant]
  9. HYDROXYZINE HYDROCHLORIDE [Concomitant]
  10. CARISOPRODOL [Concomitant]
  11. DOXYCYCLINE [Concomitant]
  12. GUAIFENESIN [Concomitant]
  13. ANCOVERT [Concomitant]
  14. TORSEMIDE [Concomitant]
  15. DAPSONE [Concomitant]
  16. MELOXICAM [Concomitant]

REACTIONS (4)
  - ASTHENIA [None]
  - FEELING ABNORMAL [None]
  - PNEUMONIA [None]
  - VIRAL INFECTION [None]
